FAERS Safety Report 9243580 (Version 1)
Quarter: 2013Q2

REPORT INFORMATION
  Report Type: Spontaneous
  Country: JP (occurrence: JP)
  Receive Date: 20130422
  Receipt Date: 20130422
  Transmission Date: 20140414
  Serious: Yes (Other)
  Sender: FDA-Public Use
  Company Number: JP-ABBOTT-13X-087-1078749-00

PATIENT
  Age: 96 Year
  Sex: 0

DRUGS (1)
  1. CLARITH [Suspect]
     Indication: ATYPICAL MYCOBACTERIAL INFECTION
     Route: 048

REACTIONS (1)
  - Bradycardia [Unknown]
